FAERS Safety Report 6577802-9 (Version None)
Quarter: 2010Q1

REPORT INFORMATION
  Report Type: 
  Country: None (occurrence: None)
  Receive Date: 20100211
  Receipt Date: 20100201
  Transmission Date: 20100710
  Serious: Yes (Other)
  Sender: FDA-Public Use
  Company Number: JP-ROCHE-673939

PATIENT
  Sex: Male

DRUGS (2)
  1. TAMIFLU [Suspect]
     Indication: INFLUENZA
     Route: 048
     Dates: start: 20091125, end: 20091125
  2. TAMIFLU [Suspect]
     Route: 048
     Dates: start: 20091126, end: 20091126

REACTIONS (3)
  - ABNORMAL BEHAVIOUR [None]
  - CONVULSION [None]
  - SUICIDAL IDEATION [None]
